FAERS Safety Report 10248894 (Version 8)
Quarter: 2015Q2

REPORT INFORMATION
  Report Type: Spontaneous
  Country: US (occurrence: US)
  Receive Date: 20140620
  Receipt Date: 20150630
  Transmission Date: 20150821
  Serious: Yes (Hospitalization, Congenital Anomaly)
  Sender: FDA-Public Use
  Company Number: US-JNJFOC-20140612508

PATIENT
  Sex: Male

DRUGS (5)
  1. AXERT [Suspect]
     Active Substance: ALMOTRIPTAN MALATE
     Indication: GENERALISED TONIC-CLONIC SEIZURE
     Route: 064
  2. PHENERGAN [Suspect]
     Active Substance: PROMETHAZINE HYDROCHLORIDE
     Indication: NAUSEA
     Route: 064
  3. TOPAMAX [Suspect]
     Active Substance: TOPIRAMATE
     Indication: GENERALISED TONIC-CLONIC SEIZURE
     Dosage: PARENT DOSING
     Route: 064
     Dates: start: 200409, end: 201011
  4. TOPAMAX [Suspect]
     Active Substance: TOPIRAMATE
     Indication: MIGRAINE
     Dosage: PARENT DOSING
     Route: 064
     Dates: start: 200409, end: 201011
  5. TOPAMAX [Suspect]
     Active Substance: TOPIRAMATE
     Indication: SEIZURE
     Dosage: PARENT DOSING
     Route: 064
     Dates: start: 200409, end: 201011

REACTIONS (4)
  - Velopharyngeal incompetence [Recovering/Resolving]
  - Otitis media [Recovered/Resolved]
  - Cleft lip and palate [Recovering/Resolving]
  - Foetal exposure during pregnancy [Recovered/Resolved]
